FAERS Safety Report 4450935-9 (Version None)
Quarter: 2004Q3

REPORT INFORMATION
  Report Type: 
  Country: None (occurrence: None)
  Receive Date: 20040916
  Receipt Date: 20030501
  Transmission Date: 20050211
  Serious: Yes (Other)
  Sender: FDA-Public Use
  Company Number: US-BRISTOL-MYERS SQUIBB COMPANY-12271698

PATIENT
  Age: 57 Year
  Sex: Female

DRUGS (15)
  1. STADOL [Suspect]
     Indication: MIGRAINE
     Route: 030
     Dates: start: 19870101, end: 19960101
  2. PROPOXYPHENE [Suspect]
  3. ALCOHOL [Suspect]
  4. VICODIN [Concomitant]
  5. TORADOL [Concomitant]
  6. SYNTHROID [Concomitant]
  7. FIORINAL [Concomitant]
  8. BIAXIN [Concomitant]
  9. ZOLOFT [Concomitant]
  10. PHENERGAN HCL [Concomitant]
     Indication: MIGRAINE
     Route: 030
  11. DARVOCET-N 100 [Concomitant]
  12. ATIVAN [Concomitant]
  13. DEMEROL [Concomitant]
  14. PROZAC [Concomitant]
  15. WYGESIC [Concomitant]

REACTIONS (6)
  - DEPENDENCE [None]
  - OEDEMA PERIPHERAL [None]
  - OVERDOSE [None]
  - PANIC ATTACK [None]
  - SINUS TACHYCARDIA [None]
  - SUICIDAL IDEATION [None]
